FAERS Safety Report 18711315 (Version 2)
Quarter: 2022Q3

REPORT INFORMATION
  Report Type: Spontaneous
  Country: JP (occurrence: JP)
  Receive Date: 20210107
  Receipt Date: 20220714
  Transmission Date: 20221027
  Serious: Yes (Hospitalization, Other)
  Sender: FDA-Public Use
  Company Number: JP-GLAXOSMITHKLINE-JP2021JPN000538

PATIENT

DRUGS (5)
  1. VALTREX [Suspect]
     Active Substance: VALACYCLOVIR HYDROCHLORIDE
     Indication: Herpes zoster
     Dosage: 1500 MG, QD
     Route: 048
     Dates: start: 20200807, end: 20200810
  2. LOXOPROFEN [Suspect]
     Active Substance: LOXOPROFEN
     Indication: Headache
     Dosage: UNK, PRN
     Route: 048
  3. TEGRETOL [Suspect]
     Active Substance: CARBAMAZEPINE
     Indication: Periorbital pain
     Dosage: 200 MG, BID
     Route: 048
     Dates: start: 20200804, end: 20200810
  4. BENIDIPINE HYDROCHLORIDE [Concomitant]
     Active Substance: BENIDIPINE HYDROCHLORIDE
     Dosage: UNK
  5. OMEPRAZOLE [Concomitant]
     Active Substance: OMEPRAZOLE
     Dosage: UNK

REACTIONS (2)
  - Renal impairment [Recovering/Resolving]
  - Renal tubular disorder [Unknown]

NARRATIVE: CASE EVENT DATE: 20200810
